FAERS Safety Report 7418346-1 (Version None)
Quarter: 2011Q2

REPORT INFORMATION
  Report Type: 
  Country: None (occurrence: None)
  Receive Date: 20110415
  Receipt Date: 20110408
  Transmission Date: 20111010
  Serious: Yes (Hospitalization)
  Sender: FDA-Public Use
  Company Number: A0922091A

PATIENT
  Sex: Female

DRUGS (2)
  1. UNSPECIFIED MEDICATION [Suspect]
  2. LAMICTAL [Suspect]
     Indication: CONVULSION
     Dosage: 400MG PER DAY
     Route: 048

REACTIONS (1)
  - NEUTROPENIA [None]
